FAERS Safety Report 8376770-7 (Version None)
Quarter: 2012Q2

REPORT INFORMATION
  Report Type: 
  Country: None (occurrence: None)
  Receive Date: 20120522
  Receipt Date: 20120220
  Transmission Date: 20120825
  Serious: Yes (Other)
  Sender: FDA-Public Use
  Company Number: US-BRISTOL-MYERS SQUIBB COMPANY-16409237

PATIENT
  Age: 50 Year
  Sex: Male

DRUGS (1)
  1. ONGLYZA [Suspect]

REACTIONS (1)
  - PANCREATITIS [None]
